FAERS Safety Report 7421376-7 (Version None)
Quarter: 2011Q2

REPORT INFORMATION
  Report Type: 
  Country: None (occurrence: None)
  Receive Date: 20110407
  Receipt Date: 20110324
  Transmission Date: 20111010
  Serious: Yes (Other)
  Sender: FDA-Public Use
  Company Number: 2011SP003788

PATIENT
  Age: 16 Year
  Sex: Female

DRUGS (2)
  1. NEXPLANON (ETONOGESTREL /01502301/) [Suspect]
  2. NEXPLANON (ETONOGESTREL /01502301/) [Suspect]
     Dosage: 68 MG; SBDE
     Route: 059
     Dates: start: 20110110

REACTIONS (3)
  - LACERATION [None]
  - IMPLANT SITE REACTION [None]
  - PROCEDURAL COMPLICATION [None]
